FAERS Safety Report 4352450-X (Version None)
Quarter: 2004Q2

REPORT INFORMATION
  Report Type: 
  Country: None (occurrence: None)
  Receive Date: 20040428
  Receipt Date: 20040413
  Transmission Date: 20050107
  Serious: No
  Sender: FDA-Public Use
  Company Number: 04H-122-0258850-00

PATIENT
  Age: 35 Year
  Sex: Male

DRUGS (3)
  1. PENTOTHAL [Suspect]
     Indication: ANAESTHESIA
     Dosage: 675 MG, INTRAVENOUS
     Route: 042
     Dates: start: 20040325, end: 20040325
  2. SUXAMETHONIUM CHLORIDE [Suspect]
     Indication: ANAESTHESIA
     Dosage: 200 MG, INTRAVENOUS
     Route: 042
     Dates: start: 20040325, end: 20040325
  3. FENTANYL [Concomitant]

REACTIONS (3)
  - BRADYCARDIA [None]
  - FLUSHING [None]
  - HYPOTENSION [None]
